FAERS Safety Report 10758291 (Version 1)
Quarter: 2015Q1

REPORT INFORMATION
  Report Type: Spontaneous
  Country: US (occurrence: US)
  Receive Date: 20150203
  Receipt Date: 20150203
  Transmission Date: 20150721
  Serious: Yes (Other)
  Sender: FDA-Public Use
  Company Number: US-009507513-1502USA000458

PATIENT
  Sex: Male

DRUGS (1)
  1. VYTORIN [Suspect]
     Active Substance: EZETIMIBE\SIMVASTATIN
     Dosage: 10/10 MG, QD
     Route: 048

REACTIONS (2)
  - Vascular graft [Unknown]
  - Prostate cancer [Unknown]

NARRATIVE: CASE EVENT DATE: 2001
